FAERS Safety Report 7469706-4 (Version None)
Quarter: 2011Q2

REPORT INFORMATION
  Report Type: 
  Country: None (occurrence: None)
  Receive Date: 20110510
  Receipt Date: 20110505
  Transmission Date: 20111010
  Serious: Yes (Hospitalization)
  Sender: FDA-Public Use
  Company Number: US-BRISTOL-MYERS SQUIBB COMPANY-15683907

PATIENT
  Age: 74 Year
  Sex: Male

DRUGS (28)
  1. CHONDROITIN [Concomitant]
     Route: 048
  2. LOMOTIL [Concomitant]
     Route: 048
  3. VYTORIN [Concomitant]
     Dosage: 1DF:10/40MG
     Route: 048
  4. PLAVIX [Concomitant]
  5. ACYCLOVIR [Concomitant]
     Route: 048
  6. CELEBREX [Concomitant]
     Dosage: PRN
     Route: 048
  7. ACIPHEX [Concomitant]
     Dosage: PRN
     Route: 048
  8. HYDROCHLOROTHIAZIDE [Concomitant]
     Route: 048
  9. GLUCOSAMINE [Concomitant]
     Route: 048
  10. ZOFRAN [Concomitant]
     Route: 048
  11. ALLOPURINOL [Concomitant]
     Route: 048
  12. ACIPHEX [Concomitant]
  13. HYDROCORTISONE [Concomitant]
     Dosage: CREAM 10MG AND 5MG
  14. PREVACID [Concomitant]
     Dosage: PRN
     Route: 048
  15. ZOFRAN [Concomitant]
     Route: 048
  16. YERVOY [Suspect]
     Indication: MALIGNANT MELANOMA
     Route: 042
     Dates: start: 20110118, end: 20110208
  17. ASPIRIN [Concomitant]
     Route: 048
  18. ACETAMINOPHEN [Concomitant]
     Dosage: 1DF: TABS
  19. IMODIUM [Concomitant]
     Route: 048
  20. PREDNISONE [Concomitant]
     Route: 048
  21. GLYBURIDE [Concomitant]
     Route: 048
  22. DIOVAN [Concomitant]
     Route: 048
  23. BENADRYL [Concomitant]
     Route: 048
  24. PROTONIX [Concomitant]
     Route: 048
  25. COMPAZINE [Concomitant]
     Dosage: Q4-6 HRS
  26. DILTIAZEM HCL [Concomitant]
     Route: 048
  27. M.V.I. [Concomitant]
     Dosage: 1DF:1TAB
     Route: 048
  28. LASIX [Concomitant]
     Route: 048

REACTIONS (3)
  - DIARRHOEA [None]
  - LARGE INTESTINE PERFORATION [None]
  - DEHYDRATION [None]
